FAERS Safety Report 12425219 (Version 2)
Quarter: 2016Q2

REPORT INFORMATION
  Report Type: Spontaneous
  Country: HR (occurrence: HR)
  Receive Date: 20160601
  Receipt Date: 20160609
  Transmission Date: 20160815
  Serious: Yes (Other)
  Sender: FDA-Public Use
  Company Number: HR-PFIZER INC-2016281989

PATIENT
  Age: 60 Year
  Sex: Female

DRUGS (1)
  1. ZIPRASIDONE HCL [Suspect]
     Active Substance: ZIPRASIDONE HYDROCHLORIDE
     Indication: MAJOR DEPRESSION
     Dosage: 80 MG, DAILY

REACTIONS (4)
  - Agitation [Unknown]
  - Tremor [Unknown]
  - Delusion [Unknown]
  - Muscle rigidity [Unknown]
